FAERS Safety Report 19944608 (Version 1)
Quarter: 2021Q4

REPORT INFORMATION
  Report Type: Spontaneous
  Country: US (occurrence: US)
  Receive Date: 20211010
  Receipt Date: 20211010
  Transmission Date: 20220303
  Serious: Yes (Life-Threatening)
  Sender: FDA-Public Use
  Company Number: None

PATIENT
  Age: 65 Year
  Sex: Female
  Weight: 81 kg

DRUGS (15)
  1. DEXMEDETOMIDINE [Suspect]
     Active Substance: DEXMEDETOMIDINE
     Indication: Sedation
     Dosage: ?          OTHER FREQUENCY:CONTINUOUS;
     Route: 042
     Dates: start: 20210527, end: 20210529
  2. ASPIRIN [Concomitant]
     Active Substance: ASPIRIN
     Dates: start: 20210527, end: 20210609
  3. SPIRONOLACTONE [Concomitant]
     Active Substance: SPIRONOLACTONE
     Dates: start: 20210525, end: 20210601
  4. acidophilus pectin, citrus [Concomitant]
     Dates: start: 20210527, end: 20210610
  5. ZOSYN [Concomitant]
     Active Substance: PIPERACILLIN SODIUM\TAZOBACTAM SODIUM
     Dates: start: 20210522, end: 20210527
  6. VANCOMYCIN [Concomitant]
     Active Substance: VANCOMYCIN
     Dates: start: 20210522, end: 20210530
  7. THIAMINE [Concomitant]
     Active Substance: THIAMINE
     Dates: start: 20210520, end: 20210529
  8. FENTANYL [Concomitant]
     Active Substance: FENTANYL
     Dates: start: 20210520, end: 20210603
  9. FOLIC ACID [Concomitant]
     Active Substance: FOLIC ACID
     Dates: start: 20210520, end: 20210610
  10. KETAMINE [Concomitant]
     Active Substance: KETAMINE
     Dates: start: 20210522, end: 20210527
  11. FAMOTIDINE [Concomitant]
     Active Substance: FAMOTIDINE
     Dates: start: 20210521, end: 20210610
  12. ENOXAPARIN [Concomitant]
     Active Substance: ENOXAPARIN
     Dates: start: 20210523, end: 20210527
  13. IPRATROPIUM [Concomitant]
     Active Substance: IPRATROPIUM
     Dates: start: 20210523, end: 20210601
  14. MIRALAX [Concomitant]
     Active Substance: POLYETHYLENE GLYCOL 3350
     Dates: start: 20210525, end: 20210610
  15. BISACODYL [Concomitant]
     Active Substance: BISACODYL
     Dates: start: 20210525, end: 20210610

REACTIONS (3)
  - Angioedema [None]
  - Pyrexia [None]
  - Contrast media reaction [None]

NARRATIVE: CASE EVENT DATE: 20210527
